FAERS Safety Report 17371204 (Version 2)
Quarter: 2020Q2

REPORT INFORMATION
  Report Type: Report from Study
  Country: US (occurrence: US)
  Receive Date: 20200205
  Receipt Date: 20200406
  Transmission Date: 20200713
  Serious: Yes (Death, Hospitalization, Disabling)
  Sender: FDA-Public Use
  Company Number: US-EISAI MEDICAL RESEARCH-EC-2020-068223

PATIENT
  Age: 72 Year
  Sex: Female
  Weight: 61 kg

DRUGS (20)
  1. ALPROZOLAM [Concomitant]
     Active Substance: ALPRAZOLAM
  2. PANTOPRAZOLE [Concomitant]
     Active Substance: PANTOPRAZOLE
  3. VITAMIN E-100 [Concomitant]
  4. GLUCOSAMINE CHONDROITIN [Concomitant]
     Active Substance: CHONDROITIN SULFATE (BOVINE)\GLUCOSAMINE HYDROCHLORIDE
  5. TRIAMTERENE-HCTZ [Concomitant]
     Active Substance: HYDROCHLOROTHIAZIDE\TRIAMTERENE
  6. LENVIMA [Suspect]
     Active Substance: LENVATINIB
     Indication: ENDOMETRIAL CANCER METASTATIC
     Route: 048
     Dates: start: 20200106, end: 20200116
  7. IBUPROFEN. [Concomitant]
     Active Substance: IBUPROFEN
  8. ROSUVASTATIN. [Concomitant]
     Active Substance: ROSUVASTATIN
  9. ACETAMINOPHEN. [Concomitant]
     Active Substance: ACETAMINOPHEN
  10. ASCORBIC ACID. [Concomitant]
     Active Substance: ASCORBIC ACID
  11. CALCIUM GLUCONATE. [Concomitant]
     Active Substance: CALCIUM GLUCONATE
  12. DULOXETINE. [Concomitant]
     Active Substance: DULOXETINE
  13. MAGNESIUM [Concomitant]
     Active Substance: MAGNESIUM
  14. TURMERIC [Concomitant]
     Active Substance: HERBALS\TURMERIC
  15. VITAMIN E-400 [Concomitant]
  16. NAPROXEN SODIUM. [Concomitant]
     Active Substance: NAPROXEN SODIUM
  17. CALCIUM CARB-CHOLECALCIFEROL [Concomitant]
  18. GABAPENTIN. [Concomitant]
     Active Substance: GABAPENTIN
  19. MULTIVITAMINS [Concomitant]
     Active Substance: VITAMINS
  20. OMEGA-3 FATTY ACIDS [Concomitant]
     Active Substance: OMEGA-3 FATTY ACIDS

REACTIONS (3)
  - Fatigue [Recovering/Resolving]
  - Disorientation [Unknown]
  - Death [Fatal]

NARRATIVE: CASE EVENT DATE: 202001
